FAERS Safety Report 21060107 (Version 2)
Quarter: 2022Q3

REPORT INFORMATION
  Report Type: Report from Study
  Country: US (occurrence: US)
  Receive Date: 20220708
  Receipt Date: 20220713
  Transmission Date: 20221027
  Serious: No
  Sender: FDA-Public Use
  Company Number: US-SANOFI-01169645

PATIENT
  Age: 49 Year
  Sex: Female

DRUGS (2)
  1. DUPIXENT [Suspect]
     Active Substance: DUPILUMAB
     Indication: Dermatitis atopic
     Dosage: 600 MG1X
     Route: 058
     Dates: start: 20220607, end: 20220607
  2. DUPIXENT [Suspect]
     Active Substance: DUPILUMAB
     Dosage: 300 MG, QOW
     Route: 058
     Dates: start: 20220621

REACTIONS (4)
  - Injection site warmth [Recovering/Resolving]
  - Injection site induration [Recovering/Resolving]
  - Injection site erythema [Not Recovered/Not Resolved]
  - Restless legs syndrome [Recovering/Resolving]

NARRATIVE: CASE EVENT DATE: 20220625
